FAERS Safety Report 7671275-0 (Version None)
Quarter: 2011Q3

REPORT INFORMATION
  Report Type: 
  Country: None (occurrence: None)
  Receive Date: 20110809
  Receipt Date: 20110729
  Transmission Date: 20111222
  Serious: Yes (Hospitalization)
  Sender: FDA-Public Use
  Company Number: JP-JNJFOC-20110801595

PATIENT
  Age: 39 Year
  Sex: Male
  Weight: 135 kg

DRUGS (2)
  1. REMICADE [Suspect]
     Indication: PUSTULAR PSORIASIS
     Route: 042
     Dates: start: 20100809
  2. REMICADE [Suspect]
     Route: 042
     Dates: start: 20100301

REACTIONS (1)
  - DIVERTICULITIS [None]
